FAERS Safety Report 12716739 (Version 1)
Quarter: 2016Q3

REPORT INFORMATION
  Report Type: Report from Study
  Country: US (occurrence: US)
  Receive Date: 20160906
  Receipt Date: 20160906
  Transmission Date: 20161109
  Serious: Yes (Other)
  Sender: FDA-Public Use
  Company Number: US-BRACCO-013884

PATIENT
  Age: 58 Year
  Sex: Female

DRUGS (1)
  1. MULTIHANCE [Suspect]
     Active Substance: GADOBENATE DIMEGLUMINE
     Indication: NUCLEAR MAGNETIC RESONANCE IMAGING
     Dates: start: 2009, end: 2009

REACTIONS (17)
  - Skin discolouration [Unknown]
  - Hair metal test abnormal [Unknown]
  - Abdominal discomfort [Recovering/Resolving]
  - Pain in extremity [Recovering/Resolving]
  - Skin texture abnormal [Unknown]
  - Blood pressure increased [Unknown]
  - Dysgeusia [Recovered/Resolved]
  - Alopecia [Unknown]
  - Nausea [Unknown]
  - Bladder pain [Unknown]
  - Skin tightness [Unknown]
  - Mental status changes [Recovered/Resolved]
  - Rash [Unknown]
  - Skin fibrosis [Unknown]
  - Headache [Unknown]
  - Urine analysis abnormal [Unknown]
  - Disorientation [Recovered/Resolved]

NARRATIVE: CASE EVENT DATE: 2009
